FAERS Safety Report 5703138-1 (Version None)
Quarter: 2008Q2

REPORT INFORMATION
  Report Type: 
  Country: None (occurrence: None)
  Receive Date: 20080411
  Receipt Date: 20080331
  Transmission Date: 20081010
  Serious: Yes (Other)
  Sender: FDA-Public Use
  Company Number: JP-PFIZER INC-2008019899

PATIENT
  Age: 23 Year
  Sex: Female

DRUGS (2)
  1. ZITHROMAX [Suspect]
     Indication: CHLAMYDIAL INFECTION
     Route: 048
     Dates: start: 20080225, end: 20080225
  2. MYSLEE [Suspect]

REACTIONS (3)
  - CAESAREAN SECTION [None]
  - DRUG ADMINISTRATION ERROR [None]
  - VOMITING [None]
